FAERS Safety Report 8959570 (Version 1)
Quarter: 2012Q4

REPORT INFORMATION
  Report Type: 
  Country: US (occurrence: US)
  Receive Date: 20121212
  Receipt Date: 20121212
  Transmission Date: 20130627
  Serious: Yes (Other)
  Sender: FDA-Public Use
  Company Number: US-ROCHE-1167407

PATIENT
  Age: 53 Year
  Sex: Female

DRUGS (4)
  1. BEVACIZUMAB [Suspect]
     Indication: COLORECTAL CANCER STAGE IV
     Route: 065
     Dates: start: 200812
  2. BEVACIZUMAB [Suspect]
     Route: 065
     Dates: start: 201103
  3. 5-FLUOROURACIL [Concomitant]
     Indication: COLORECTAL CANCER STAGE IV
     Route: 065
  4. LEUCOVORIN [Concomitant]
     Indication: COLORECTAL CANCER STAGE IV
     Route: 065

REACTIONS (4)
  - Hypertension [Unknown]
  - Tooth loss [Unknown]
  - Rectal haemorrhage [Unknown]
  - Proteinuria [Unknown]
